FAERS Safety Report 7618850-7 (Version None)
Quarter: 2011Q3

REPORT INFORMATION
  Report Type: 
  Country: None (occurrence: None)
  Receive Date: 20110718
  Receipt Date: 20110713
  Transmission Date: 20111222
  Serious: Yes (Hospitalization, Other)
  Sender: FDA-Public Use
  Company Number: JP-BAYER-2011-026035

PATIENT
  Sex: Female

DRUGS (4)
  1. MOXIFLOXACIN [Suspect]
     Indication: BRONCHITIS
     Route: 048
  2. AMPICILLIN W/SULBACTAM [Concomitant]
     Indication: BRONCHITIS
  3. AZITHROMYCIN [Concomitant]
     Indication: BRONCHITIS
  4. LEVOFLOXACIN [Suspect]
     Indication: BRONCHITIS

REACTIONS (3)
  - PNEUMOMEDIASTINUM [None]
  - INTERSTITIAL LUNG DISEASE [None]
  - BRONCHIECTASIS [None]
